FAERS Safety Report 24223195 (Version 8)
Quarter: 2025Q4

REPORT INFORMATION
  Report Type: Report from Study
  Country: EU (occurrence: EU)
  Receive Date: 20240819
  Receipt Date: 20251211
  Transmission Date: 20260117
  Serious: Yes (Other)
  Sender: NOVARTIS
  Company Number: EU-002147023-NVSC2024DE166513

PATIENT
  Sex: Male
  Weight: 86 kg

DRUGS (18)
  1. SCEMBLIX [Suspect]
     Active Substance: ASCIMINIB HYDROCHLORIDE
     Indication: Chronic myeloid leukaemia
     Dosage: 80 MG (DAILY DOSAGE), BID
     Route: 048
     Dates: start: 20240713, end: 20240714
  2. SCEMBLIX [Suspect]
     Active Substance: ASCIMINIB HYDROCHLORIDE
     Dosage: 80 MG (DAILY DOSAGE), QD
     Route: 048
     Dates: start: 20240715, end: 20250315
  3. SCEMBLIX [Suspect]
     Active Substance: ASCIMINIB HYDROCHLORIDE
     Dosage: 80 MG, BID
     Route: 048
     Dates: start: 20250316, end: 20250903
  4. ASPIRIN [Concomitant]
     Active Substance: ASPIRIN
     Indication: Prophylaxis
     Dosage: 100 MG
     Route: 065
     Dates: start: 20231028, end: 20240615
  5. ROSUVASTATIN [Concomitant]
     Active Substance: ROSUVASTATIN
     Indication: Prophylaxis
     Dosage: 20 MG
     Route: 065
     Dates: start: 20231219
  6. TORSEMIDE [Concomitant]
     Active Substance: TORSEMIDE
     Indication: Pleural effusion
     Dosage: 5 MG
     Route: 065
     Dates: start: 20240712, end: 20250110
  7. CLOPIDOGREL [Concomitant]
     Active Substance: CLOPIDOGREL BISULFATE
     Indication: Prophylaxis
     Dosage: 75 MG
     Route: 065
     Dates: start: 20240418
  8. MORPHINE [Concomitant]
     Active Substance: MORPHINE
     Indication: Pain
     Dosage: 20 MG
     Route: 065
  9. PANTOZOL [Concomitant]
     Active Substance: PANTOPRAZOLE SODIUM
     Indication: Gastrooesophageal reflux disease
     Dosage: 40 MG
     Route: 065
  10. ALBUTEROL [Concomitant]
     Active Substance: ALBUTEROL
     Indication: Asthma
     Dosage: UNK (SPRAY)
     Route: 065
  11. DILTIAZEM HYDROCHLORIDE [Concomitant]
     Active Substance: DILTIAZEM HYDROCHLORIDE
     Indication: Rectal ulcer
     Dosage: UNK
     Route: 065
  12. MCP [Concomitant]
     Active Substance: METOCLOPRAMIDE HYDROCHLORIDE
     Indication: Nausea
     Dosage: UNK (DROPS)
     Route: 065
     Dates: start: 20230725
  13. MCP [Concomitant]
     Active Substance: METOCLOPRAMIDE HYDROCHLORIDE
     Dosage: UNK, PRN
     Route: 065
     Dates: start: 20230725
  14. PREDNISONE [Concomitant]
     Active Substance: PREDNISONE
     Indication: Infection
     Dosage: 40 MG
     Route: 065
     Dates: start: 20250917, end: 20250923
  15. PREDNISONE [Concomitant]
     Active Substance: PREDNISONE
     Dosage: 30 MG
     Route: 065
     Dates: start: 20250924, end: 20250930
  16. PREDNISONE [Concomitant]
     Active Substance: PREDNISONE
     Dosage: 20 MG
     Route: 065
     Dates: start: 20251001, end: 20251014
  17. PREDNISONE [Concomitant]
     Active Substance: PREDNISONE
     Dosage: 15 MG
     Route: 065
     Dates: start: 20251015, end: 20251029
  18. PREDNISONE [Concomitant]
     Active Substance: PREDNISONE
     Dosage: 12.5 MG
     Route: 065
     Dates: start: 20251030

REACTIONS (14)
  - Leukopenia [Not Recovered/Not Resolved]
  - Colitis [Recovered/Resolved]
  - Alanine aminotransferase increased [Recovered/Resolved]
  - Alanine aminotransferase increased [Recovered/Resolved]
  - Hypertension [Recovering/Resolving]
  - Nasopharyngitis [Recovered/Resolved]
  - Gastroenteritis [Recovered/Resolved]
  - N-terminal prohormone brain natriuretic peptide increased [Not Recovered/Not Resolved]
  - Blood lactate dehydrogenase increased [Recovered/Resolved]
  - Gamma-glutamyltransferase increased [Recovered/Resolved]
  - Platelet count increased [Recovered/Resolved]
  - International normalised ratio increased [Not Recovered/Not Resolved]
  - C-reactive protein increased [Not Recovered/Not Resolved]
  - Blood alkaline phosphatase increased [Recovered/Resolved]

NARRATIVE: CASE EVENT DATE: 20240809
